FAERS Safety Report 5050795-1 (Version None)
Quarter: 2006Q3

REPORT INFORMATION
  Report Type: 
  Country: None (occurrence: None)
  Receive Date: 20060710
  Receipt Date: 20060627
  Transmission Date: 20061208
  Serious: Yes (Other)
  Sender: FDA-Public Use
  Company Number: 2006082606

PATIENT

DRUGS (2)
  1. LYRICA [Suspect]
     Indication: CANCER PAIN
     Dosage: ORAL
     Route: 048
  2. BENZODIAZEPINE DERIVATIVES (BENZODIAZEPINE DERIVATIVES) [Concomitant]

REACTIONS (2)
  - DEPRESSED LEVEL OF CONSCIOUSNESS [None]
  - SEDATION [None]
